FAERS Safety Report 7272896-X (Version None)
Quarter: 2011Q1

REPORT INFORMATION
  Report Type: 
  Country: None (occurrence: None)
  Receive Date: 20110126
  Receipt Date: 20110111
  Transmission Date: 20110831
  Serious: Yes (Life-Threatening, Hospitalization)
  Sender: FDA-Public Use
  Company Number: UK-ACCORD-002828

PATIENT
  Age: 22 Year
  Sex: Male

DRUGS (5)
  1. TACROLIMUS [Suspect]
     Indication: IMMUNOSUPPRESSION
  2. ACETAMINOPHEN [Suspect]
  3. MYCOPHENOLATE MOFETIL [Suspect]
     Indication: IMMUNOSUPPRESSION
  4. AZATHIOPRINE [Suspect]
  5. METHYLPREDNISOLONE [Concomitant]

REACTIONS (12)
  - SEPSIS [None]
  - OVERDOSE [None]
  - HEPATIC STEATOSIS [None]
  - PROCEDURAL VOMITING [None]
  - POST PROCEDURAL COMPLICATION [None]
  - ABDOMINAL DISTENSION [None]
  - ENCEPHALOPATHY [None]
  - WHITE BLOOD CELL COUNT INCREASED [None]
  - ACUTE HEPATIC FAILURE [None]
  - PANCREATITIS NECROTISING [None]
  - LIVER TRANSPLANT [None]
  - FAT NECROSIS [None]
